FAERS Safety Report 8214435-2 (Version None)
Quarter: 2012Q1

REPORT INFORMATION
  Report Type: 
  Country: None (occurrence: None)
  Receive Date: 20120227
  Receipt Date: 20111209
  Transmission Date: 20120608
  Serious: No
  Sender: FDA-Public Use
  Company Number: 341262

PATIENT
  Age: 54 Year
  Sex: Female

DRUGS (2)
  1. METFORMIN HCL [Suspect]
     Indication: TYPE 2 DIABETES MELLITUS
     Dosage: ORAL
     Route: 048
  2. VICTOZA [Suspect]
     Indication: TYPE 2 DIABETES MELLITUS
     Dosage: 1.2 MG, QD, SUBCUTANEOUS
     Route: 058
     Dates: start: 20111128

REACTIONS (7)
  - BLOOD GLUCOSE INCREASED [None]
  - VISUAL ACUITY REDUCED [None]
  - SKIN WARM [None]
  - RHINORRHOEA [None]
  - INJECTION SITE HAEMORRHAGE [None]
  - BLOOD GLUCOSE DECREASED [None]
  - ABDOMINAL DISTENSION [None]
